FAERS Safety Report 14479154 (Version 1)
Quarter: 2018Q1

REPORT INFORMATION
  Report Type: Spontaneous
  Country: US (occurrence: US)
  Receive Date: 20180202
  Receipt Date: 20180202
  Transmission Date: 20180509
  Serious: Yes (Other)
  Sender: FDA-Public Use
  Company Number: US-JNJFOC-20180128306

PATIENT
  Sex: Male

DRUGS (1)
  1. LISTERINE COOL MINT ANTISEPTIC [Suspect]
     Active Substance: EUCALYPTOL\MENTHOL\METHYL SALICYLATE\THYMOL
     Indication: DENTAL CARE
     Route: 048
     Dates: start: 20180119, end: 20180120

REACTIONS (1)
  - Burns third degree [Not Recovered/Not Resolved]

NARRATIVE: CASE EVENT DATE: 20180120
